FAERS Safety Report 20993861 (Version 1)
Quarter: 2022Q2

REPORT INFORMATION
  Report Type: Spontaneous
  Country: BR (occurrence: BR)
  Receive Date: 20220622
  Receipt Date: 20220622
  Transmission Date: 20220720
  Serious: Yes (Other)
  Sender: FDA-Public Use
  Company Number: BR-BAXTER-2022BAX008486

PATIENT
  Age: 28 Year
  Sex: Female

DRUGS (1)
  1. IRON [Suspect]
     Active Substance: IRON
     Indication: Anaemia
     Dosage: ROUTE: ENDOVENOUS
     Route: 042
     Dates: end: 20220408

REACTIONS (3)
  - Laryngeal oedema [Recovered/Resolved]
  - Urticaria [Recovered/Resolved]
  - Hypotension [Recovered/Resolved]

NARRATIVE: CASE EVENT DATE: 20220408
